FAERS Safety Report 9097739 (Version 2)
Quarter: 2013Q1

REPORT INFORMATION
  Report Type: Spontaneous
  Country: US (occurrence: US)
  Receive Date: 20130212
  Receipt Date: 20130225
  Transmission Date: 20140127
  Serious: Yes (Hospitalization, Other)
  Sender: FDA-Public Use
  Company Number: US-BRISTOL-MYERS SQUIBB COMPANY-17365974

PATIENT
  Age: 63 Year
  Sex: Female
  Weight: 61 kg

DRUGS (7)
  1. METFORMIN HCL [Suspect]
     Indication: DIABETES MELLITUS
     Dosage: 07OCT2009-06JUN2010:242D?17-JUN-2010 TO ONG:2000MG
     Route: 048
     Dates: start: 20091007
  2. ALTACE [Concomitant]
     Route: 048
     Dates: start: 1990
  3. ATENOLOL [Concomitant]
     Route: 048
     Dates: start: 20060926
  4. ACTONEL [Concomitant]
     Route: 048
     Dates: start: 20060926
  5. LIPITOR [Concomitant]
     Route: 048
     Dates: start: 20100111
  6. DYAZIDE [Concomitant]
     Dosage: 1 DF:37.5MG/25MG
     Route: 048
     Dates: start: 1990
  7. ASPIRIN [Concomitant]
     Route: 048
     Dates: start: 1990

REACTIONS (2)
  - Coronary artery disease [Not Recovered/Not Resolved]
  - Chronic obstructive pulmonary disease [Recovered/Resolved]
